FAERS Safety Report 9302672 (Version 2)
Quarter: 2013Q2

REPORT INFORMATION
  Report Type: Spontaneous
  Country: US (occurrence: US)
  Receive Date: 20130522
  Receipt Date: 20130627
  Transmission Date: 20140414
  Serious: Yes (Other)
  Sender: FDA-Public Use
  Company Number: US-JNJFOC-20130507299

PATIENT
  Age: 32 Year
  Sex: Male

DRUGS (9)
  1. STELARA [Suspect]
     Indication: PSORIASIS
     Route: 058
     Dates: start: 20111222
  2. STELARA [Suspect]
     Indication: PSORIASIS
     Route: 058
     Dates: start: 20110929
  3. STELARA [Suspect]
     Indication: PSORIASIS
     Route: 058
     Dates: start: 20110815
  4. STELARA [Suspect]
     Indication: PSORIASIS
     Route: 058
     Dates: start: 20130423
  5. STELARA [Suspect]
     Indication: PSORIASIS
     Route: 058
     Dates: start: 20130521
  6. STELARA [Suspect]
     Indication: PSORIASIS
     Route: 058
     Dates: start: 20111213
  7. PPD3 [Concomitant]
     Route: 065
     Dates: start: 20110815
  8. EPIDUO [Concomitant]
     Route: 061
     Dates: start: 20110815
  9. CALCIPOTRIENE [Concomitant]
     Dosage: 60 GM
     Route: 061
     Dates: start: 20110815

REACTIONS (2)
  - Hepatitis B [Not Recovered/Not Resolved]
  - Psoriasis [Unknown]
